FAERS Safety Report 6517016-1 (Version None)
Quarter: 2009Q4

REPORT INFORMATION
  Report Type: 
  Country: None (occurrence: None)
  Receive Date: 20091223
  Receipt Date: 20091221
  Transmission Date: 20100525
  Serious: Yes (Hospitalization)
  Sender: FDA-Public Use
  Company Number: GXKR2009DE13697

PATIENT
  Sex: Male
  Weight: 88 kg

DRUGS (7)
  1. ASS 100 HEXAL (NGX) [Suspect]
     Dosage: 100 MG/OD
     Route: 048
     Dates: start: 19970101, end: 20091023
  2. BLINDED ALISKIREN ALI+TAB+CF [Suspect]
     Indication: CARDIAC FAILURE ACUTE
     Dosage: CODE NOT BROKEN
     Dates: start: 20090928, end: 20091024
  3. BLINDED NO TREATMENT RECEIVED NOMED [Suspect]
     Indication: CARDIAC FAILURE ACUTE
     Dosage: CODE NOT BROKEN
     Dates: start: 20090928, end: 20091024
  4. BLINDED PLACEBO COMP-PLA+ [Suspect]
     Indication: CARDIAC FAILURE ACUTE
     Dosage: CODE NOT BROKEN
     Dates: start: 20090928, end: 20091024
  5. BLINDED ALISKIREN ALI+TAB+CF [Suspect]
     Dosage: CODE NOT BROKEN
     Dates: start: 20091026
  6. BLINDED NO TREATMENT RECEIVED NOMED [Suspect]
     Dosage: CODE NOT BROKEN
     Dates: start: 20091026
  7. BLINDED PLACEBO COMP-PLA+ [Suspect]
     Dosage: CODE NOT BROKEN
     Dates: start: 20091026

REACTIONS (2)
  - EPISTAXIS [None]
  - THROMBOCYTOPENIA [None]
